FAERS Safety Report 19327393 (Version 1)
Quarter: 2021Q2

REPORT INFORMATION
  Report Type: Spontaneous
  Country: FR (occurrence: FR)
  Receive Date: 20210528
  Receipt Date: 20210528
  Transmission Date: 20210717
  Serious: Yes (Hospitalization)
  Sender: FDA-Public Use
  Company Number: NVSC2021FR110735

PATIENT
  Age: 64 Year
  Sex: Female
  Weight: 61 kg

DRUGS (1)
  1. OFLOXACIN. [Suspect]
     Active Substance: OFLOXACIN
     Indication: POST PROCEDURAL INFLAMMATION
     Dosage: 400 MG, QD
     Route: 048
     Dates: start: 20210208

REACTIONS (1)
  - Artery dissection [Recovering/Resolving]

NARRATIVE: CASE EVENT DATE: 20210307
